FAERS Safety Report 14439655 (Version 21)
Quarter: 2023Q1

REPORT INFORMATION
  Report Type: Report from Study
  Country: DE (occurrence: DE)
  Receive Date: 20180125
  Receipt Date: 20230116
  Transmission Date: 20230417
  Serious: Yes (Hospitalization, Other)
  Sender: FDA-Public Use
  Company Number: DE-BRISTOL-MYERS SQUIBB COMPANY-BMS-2017-120031

PATIENT
  Age: 30 Year
  Sex: Male
  Weight: 76 kg

DRUGS (42)
  1. REYATAZ [Suspect]
     Active Substance: ATAZANAVIR SULFATE
     Indication: HIV infection
     Dosage: CUMULATIVE DOSE TO FIRST REACTION: 262500 MG?300 MG, QD
     Route: 048
     Dates: start: 20100101, end: 20160720
  2. ATAZANAVIR SULFATE [Suspect]
     Active Substance: ATAZANAVIR SULFATE
     Indication: HIV infection
     Dosage: 1DF=200 UNIT NOS CUMULATIVE DOSE TO FIRST REACTION?262500 MG
     Route: 048
     Dates: start: 20100101, end: 20160720
  3. ATAZANAVIR SULFATE [Suspect]
     Active Substance: ATAZANAVIR SULFATE
     Indication: HIV infection
     Dosage: 1000 MG, QD
     Route: 048
     Dates: start: 20120524, end: 20120802
  4. ATAZANAVIR SULFATE [Suspect]
     Active Substance: ATAZANAVIR SULFATE
     Dosage: 800 MG, QD
     Route: 048
     Dates: start: 20120803, end: 20130425
  5. ATAZANAVIR SULFATE [Suspect]
     Active Substance: ATAZANAVIR SULFATE
     Route: 048
     Dates: end: 20160720
  6. EMTRICITABINE\TENOFOVIR DISOPROXIL [Suspect]
     Active Substance: EMTRICITABINE\TENOFOVIR DISOPROXIL
     Indication: HIV infection
     Dosage: CUMULATIVE DOSE TO FIRST REACTION: 174926.88 MG 200 MG, QD
     Route: 048
     Dates: start: 20100101, end: 20160720
  7. TELAPREVIR [Suspect]
     Active Substance: TELAPREVIR
     Indication: Chronic hepatitis C
     Dosage: UNIT DOSE:1 UNIT NOT SPEIFIED
     Route: 065
     Dates: start: 20120524, end: 20120816
  8. TELAPREVIR [Suspect]
     Active Substance: TELAPREVIR
     Indication: Chronic hepatitis C
  9. PEGASYS [Suspect]
     Active Substance: PEGINTERFERON ALFA-2A
     Indication: Chronic hepatitis C
     Dosage: 180 G, UNK
     Route: 058
     Dates: start: 20120524, end: 20130425
  10. PEGASYS [Suspect]
     Active Substance: PEGINTERFERON ALFA-2A
     Dosage: 180 MICROGRAM, QD
     Route: 058
     Dates: start: 20130425
  11. TRUVADA [Suspect]
     Active Substance: EMTRICITABINE\TENOFOVIR DISOPROXIL FUMARATE
     Indication: HIV infection
     Dosage: 200 MG, QD
     Route: 048
     Dates: start: 20100101, end: 20160720
  12. NORVIR [Suspect]
     Active Substance: RITONAVIR
     Indication: HIV infection
     Dosage: CUMULATIVE DOSE TO FIRST REACTION: 98658.76 MG?100 MG, QD
     Route: 048
     Dates: start: 20100101, end: 20160720
  13. NORVIR [Suspect]
     Active Substance: RITONAVIR
     Dosage: 100 MILLIGRAM, QD
     Route: 048
     Dates: start: 2013, end: 20160720
  14. NORVIR [Suspect]
     Active Substance: RITONAVIR
     Route: 048
     Dates: end: 2013
  15. COPEGUS [Suspect]
     Active Substance: RIBAVIRIN
     Indication: Chronic hepatitis C
     Dosage: CUMULATIVE DOSE TO FIRST REACTION: 103473.69 MG
     Route: 048
     Dates: start: 20120524, end: 20120802
  16. COPEGUS [Suspect]
     Active Substance: RIBAVIRIN
     Dosage: CUMULATIVE DOSE TO FIRST REACTION: 103473.69 MG
     Route: 048
     Dates: start: 20120803, end: 20130425
  17. COPEGUS [Suspect]
     Active Substance: RIBAVIRIN
     Dosage: 800 MG, QD
     Route: 048
  18. CITALOPRAM [Concomitant]
     Active Substance: CITALOPRAM HYDROBROMIDE
     Indication: Drug dependence
     Dosage: DOSAGE FORM: UNSPECIFIED
     Route: 065
     Dates: start: 20121220, end: 20130601
  19. CITALOPRAM [Concomitant]
     Active Substance: CITALOPRAM HYDROBROMIDE
     Indication: Product used for unknown indication
     Dosage: DOSAGE FORM: UNSPECIFIED
     Route: 065
     Dates: start: 20120621, end: 20130601
  20. CITALOPRAM [Concomitant]
     Active Substance: CITALOPRAM HYDROBROMIDE
     Dosage: 20 MILLIGRAM
     Route: 065
  21. BETAGALEN [Concomitant]
     Indication: Hepatitis C
     Dosage: UNK
  22. BETAGALEN [Concomitant]
     Dosage: UNK
     Route: 065
     Dates: start: 20120705
  23. BETAGALEN [Concomitant]
     Dosage: UNK
     Route: 065
  24. BETAGALEN [Concomitant]
     Dosage: UNK
     Route: 065
     Dates: start: 20120605
  25. AZITHROMYCIN [Concomitant]
     Active Substance: AZITHROMYCIN
     Indication: Product used for unknown indication
     Dosage: 500 MG, QD
     Dates: start: 20130605
  26. AZITHROMYCIN [Concomitant]
     Active Substance: AZITHROMYCIN
     Indication: Product used for unknown indication
     Dosage: 500 MG, QD
     Route: 065
     Dates: start: 20130603, end: 20130605
  27. ACETYLCYSTEINE [Concomitant]
     Active Substance: ACETYLCYSTEINE
     Indication: Product used for unknown indication
     Dosage: 600 MG, UNK
  28. ACETYLCYSTEINE [Concomitant]
     Active Substance: ACETYLCYSTEINE
     Dosage: 600 MILLIGRAM
     Route: 065
     Dates: start: 20130314
  29. ACETYLCYSTEINE [Concomitant]
     Active Substance: ACETYLCYSTEINE
     Dosage: UNK
     Route: 065
  30. SUBUTEX [Concomitant]
     Active Substance: BUPRENORPHINE HYDROCHLORIDE
     Indication: Product used for unknown indication
     Dosage: 4 MG, UNK
     Route: 065
  31. SUBUTEX [Concomitant]
     Active Substance: BUPRENORPHINE HYDROCHLORIDE
     Indication: Product used for unknown indication
     Dosage: 4 MG, UNK
     Route: 065
  32. SUBUTEX [Concomitant]
     Active Substance: BUPRENORPHINE HYDROCHLORIDE
     Dosage: DOSAGE FORM: UNSPECIFIED
  33. SUBUTEX [Concomitant]
     Active Substance: BUPRENORPHINE HYDROCHLORIDE
     Route: 065
  34. METAMIZOLE [Concomitant]
     Active Substance: METAMIZOLE
     Indication: Product used for unknown indication
     Dosage: UNK
     Route: 065
  35. METAMIZOLE [Concomitant]
     Active Substance: METAMIZOLE
     Dosage: UNK
     Route: 065
  36. METAMIZOLE [Concomitant]
     Active Substance: METAMIZOLE
     Dosage: UNK
     Route: 065
     Dates: start: 20121221
  37. METAMIZOLE SODIUM [Concomitant]
     Active Substance: METAMIZOLE SODIUM
     Indication: Product used for unknown indication
     Dosage: UNK
     Route: 048
     Dates: start: 20121221
  38. METAMIZOLE SODIUM [Concomitant]
     Active Substance: METAMIZOLE SODIUM
     Indication: Product used for unknown indication
  39. DIPYRONE [Concomitant]
     Active Substance: DIPYRONE
     Indication: Product used for unknown indication
     Dosage: 4 MG, UNK
  40. DIPYRONE [Concomitant]
     Active Substance: DIPYRONE
     Dosage: 4 MG, UNK
     Route: 065
  41. ACETYLCYSTEINE [Concomitant]
     Active Substance: ACETYLCYSTEINE
     Indication: Product used for unknown indication
     Dosage: DOSAGE FORM: UNSPECIFIED
     Route: 065
     Dates: start: 20130314
  42. ACETYLCYSTEINE [Concomitant]
     Active Substance: ACETYLCYSTEINE
     Indication: Product used for unknown indication

REACTIONS (31)
  - Dry skin [Not Recovered/Not Resolved]
  - Alanine aminotransferase increased [Not Recovered/Not Resolved]
  - Laboratory test abnormal [Unknown]
  - Drug dependence [Not Recovered/Not Resolved]
  - Fatigue [Recovered/Resolved]
  - Dizziness [Recovered/Resolved]
  - Withdrawal syndrome [Not Recovered/Not Resolved]
  - Taste disorder [Not Recovered/Not Resolved]
  - Influenza like illness [Recovered/Resolved]
  - Headache [Recovered/Resolved]
  - Sinusitis [Recovered/Resolved]
  - Restlessness [Recovered/Resolved]
  - Skin irritation [Not Recovered/Not Resolved]
  - Nausea [Not Recovered/Not Resolved]
  - Vertigo [Recovered/Resolved]
  - Pruritus [Recovering/Resolving]
  - Incorrect dosage administered [Recovered/Resolved]
  - Nasopharyngitis [Recovered/Resolved]
  - Depressed mood [Not Recovered/Not Resolved]
  - Anaemia [Not Recovered/Not Resolved]
  - Oral herpes [Recovered/Resolved]
  - Impaired healing [Recovered/Resolved]
  - Headache [Recovered/Resolved]
  - Wrong dose [Unknown]
  - Depressed mood [Not Recovered/Not Resolved]
  - Dizziness [Recovered/Resolved]
  - Incorrect dose administered [Unknown]
  - Pruritus [Not Recovered/Not Resolved]
  - Impaired healing [Recovered/Resolved]
  - Prescribed overdose [Unknown]
  - Alanine aminotransferase increased [Not Recovered/Not Resolved]

NARRATIVE: CASE EVENT DATE: 20120524
